FAERS Safety Report 17531868 (Version 1)
Quarter: 2020Q1

REPORT INFORMATION
  Report Type: Spontaneous
  Country: DE (occurrence: DE)
  Receive Date: 20200312
  Receipt Date: 20200312
  Transmission Date: 20200409
  Serious: Yes (Other)
  Sender: FDA-Public Use
  Company Number: NVSC2020DE066849

PATIENT
  Sex: Female

DRUGS (1)
  1. VALSARTAN. [Suspect]
     Active Substance: VALSARTAN
     Indication: PRODUCT USED FOR UNKNOWN INDICATION
     Dosage: 320 MG, QD (160 MILLIGRAM, BID)
     Route: 065
     Dates: start: 2012

REACTIONS (3)
  - Fear of disease [Not Recovered/Not Resolved]
  - Mental impairment [Not Recovered/Not Resolved]
  - Quality of life decreased [Not Recovered/Not Resolved]
